FAERS Safety Report 4585734-0 (Version None)
Quarter: 2005Q1

REPORT INFORMATION
  Report Type: 
  Country: None (occurrence: None)
  Receive Date: 20050217
  Receipt Date: 20050208
  Transmission Date: 20050727
  Serious: Yes (Other)
  Sender: FDA-Public Use
  Company Number: US-GLAXOSMITHKLINE-A0544429A

PATIENT
  Age: 74 Year
  Sex: Female
  Weight: 79 kg

DRUGS (2)
  1. CITRUCEL REGULAR SUSPENSION [Suspect]
     Indication: GASTROINTESTINAL DISORDER
     Route: 048
     Dates: start: 20000101, end: 20040801
  2. CITRUCEL SUGAR-FREE SUSPENSION ORANGE [Concomitant]
     Indication: GASTROINTESTINAL DISORDER
     Route: 048
     Dates: start: 20040801

REACTIONS (2)
  - BLOOD CHOLESTEROL INCREASED [None]
  - DIABETES MELLITUS [None]
